FAERS Safety Report 13713585 (Version 1)
Quarter: 2017Q3

REPORT INFORMATION
  Report Type: Spontaneous
  Country: FR (occurrence: FR)
  Receive Date: 20170704
  Receipt Date: 20170704
  Transmission Date: 20171127
  Serious: Yes (Life-Threatening)
  Sender: FDA-Public Use
  Company Number: FR-AUROBINDO-AUR-APL-2017-36109

PATIENT
  Age: 73 Year
  Sex: Female

DRUGS (3)
  1. CEFEPIME [Suspect]
     Active Substance: CEFEPIME HYDROCHLORIDE
     Indication: OSTEITIS
     Dosage: 1 G, TWO TIMES A DAY
     Route: 042
     Dates: start: 20170531, end: 20170603
  2. CIPROFLOXACINE MYLAN [Suspect]
     Active Substance: CIPROFLOXACIN
     Indication: OSTEITIS
     Dosage: 1 DF, ONCE A DAY
     Route: 048
     Dates: start: 20170601, end: 20170603
  3. LINEZOLIDE ARROW 600 MG FILM COATED TABLET [Suspect]
     Active Substance: LINEZOLID
     Indication: OSTEITIS
     Dosage: 1 DF, TWO TIMES A DAY
     Route: 048
     Dates: start: 20170531, end: 20170603

REACTIONS (1)
  - Epileptic encephalopathy [Recovered/Resolved]

NARRATIVE: CASE EVENT DATE: 20170603
